FAERS Safety Report 8189330-8 (Version None)
Quarter: 2012Q1

REPORT INFORMATION
  Report Type: 
  Country: None (occurrence: None)
  Receive Date: 20120307
  Receipt Date: 20120301
  Transmission Date: 20120608
  Serious: Yes (Death, Other)
  Sender: FDA-Public Use
  Company Number: US-CELGENEUS-163-21880-11060967

PATIENT

DRUGS (12)
  1. DOXORUBICIN HCL [Suspect]
     Dosage: 3 MILLIGRAM/SQ. METER
     Route: 041
  2. HEPARIN [Concomitant]
     Route: 065
  3. GLUCOCORTICOSTEROIDS [Concomitant]
     Route: 065
  4. DEXAMETHASONE [Suspect]
     Dosage: 20 MILLIGRAM
     Route: 041
  5. ASPIRIN [Concomitant]
     Route: 065
  6. WARFARIN SODIUM [Concomitant]
     Route: 065
  7. REVLIMID [Suspect]
     Dosage: 5 MILLIGRAM
     Route: 048
  8. DEXAMETHASONE [Suspect]
     Indication: MULTIPLE MYELOMA
     Dosage: 40 MILLIGRAM
     Route: 041
  9. BORTEZOMIB [Suspect]
     Indication: MULTIPLE MYELOMA
     Dosage: 1 MILLIGRAM/SQ. METER
     Route: 041
  10. REVLIMID [Suspect]
     Indication: MULTIPLE MYELOMA
     Dosage: 10 MILLIGRAM
     Route: 048
  11. BORTEZOMIB [Suspect]
     Dosage: .7 MILLIGRAM/SQ. METER
     Route: 041
  12. DOXORUBICIN HCL [Suspect]
     Indication: MULTIPLE MYELOMA
     Dosage: 4 MILLIGRAM/SQ. METER
     Route: 041

REACTIONS (34)
  - THROMBOCYTOPENIA [None]
  - CONFUSIONAL STATE [None]
  - FATIGUE [None]
  - ABDOMINAL PAIN [None]
  - VOMITING [None]
  - LEUKOPENIA [None]
  - BASAL CELL CARCINOMA [None]
  - HYPOPHOSPHATAEMIA [None]
  - NEUROPATHY PERIPHERAL [None]
  - OEDEMA [None]
  - CELLULITIS [None]
  - THROMBOPHLEBITIS SEPTIC [None]
  - DEATH [None]
  - NEUTROPENIA [None]
  - ANAEMIA [None]
  - PNEUMONIA [None]
  - BALANCE DISORDER [None]
  - MULTIPLE MYELOMA [None]
  - HYPERSENSITIVITY [None]
  - DYSPNOEA [None]
  - UPPER RESPIRATORY TRACT INFECTION [None]
  - DIARRHOEA [None]
  - HYPOKALAEMIA [None]
  - NAUSEA [None]
  - PELVIC PAIN [None]
  - SYNCOPE [None]
  - FALL [None]
  - HYPOCALCAEMIA [None]
  - COUGH [None]
  - BACK PAIN [None]
  - RESPIRATORY DISTRESS [None]
  - DYSPHAGIA [None]
  - PAIN [None]
  - PULMONARY EMBOLISM [None]
